FAERS Safety Report 10013117 (Version 1)
Quarter: 2014Q1

REPORT INFORMATION
  Report Type: Spontaneous
  Country: US (occurrence: US)
  Receive Date: 20140314
  Receipt Date: 20140314
  Transmission Date: 20141002
  Serious: Yes (Death)
  Sender: FDA-Public Use
  Company Number: US-BAXTER-2012BAX018014

PATIENT
  Age: 65 Year
  Sex: Male
  Weight: 79.55 kg

DRUGS (2)
  1. GAMMAGARD LIQUID [Suspect]
     Indication: AMYOTROPHIC LATERAL SCLEROSIS
     Route: 042
     Dates: start: 2010, end: 2011
  2. GAMMAGARD LIQUID [Suspect]
     Indication: OFF LABEL USE

REACTIONS (1)
  - Cardiac arrest [Fatal]
